FAERS Safety Report 9207167 (Version 2)
Quarter: 2014Q1

REPORT INFORMATION
  Report Type: Spontaneous
  Country: US (occurrence: US)
  Receive Date: 20130403
  Receipt Date: 20140203
  Transmission Date: 20141002
  Serious: Yes (Other)
  Sender: FDA-Public Use
  Company Number: US-BAYER-2013-039651

PATIENT
  Age: 19 Year
  Sex: Female

DRUGS (4)
  1. YAZ [Suspect]
     Dosage: UNK
     Dates: start: 2007, end: 2009
  2. NEXIUM [Concomitant]
     Dosage: 40 MG, TAKE 1 CAPSULE DAILY
  3. ZEGERID [Concomitant]
     Dosage: 40 MG, TAKE 1 CAPSULE DAILY
  4. CIPROFLOXACIN HCL [Concomitant]
     Indication: URINARY TRACT INFECTION
     Dosage: 500 MG, TAKE 1 TABLET TWICE A DAY FOR 7 DAYS

REACTIONS (5)
  - Cholecystitis chronic [None]
  - Gallbladder disorder [None]
  - Injury [None]
  - Pain [None]
  - Emotional distress [None]
